FAERS Safety Report 9556926 (Version 1)
Quarter: 2013Q3

REPORT INFORMATION
  Report Type: Spontaneous
  Country: US (occurrence: None)
  Receive Date: 20130726
  Receipt Date: 20130726
  Transmission Date: 20140515
  Serious: Yes (Hospitalization)
  Sender: FDA-Public Use
  Company Number: UTC-026480

PATIENT
  Age: 34 Year
  Sex: Female
  Weight: 82.7 kg

DRUGS (4)
  1. REMODULIN [Suspect]
     Indication: PULMONARY ARTERIAL HYPERTENSION
     Dosage: 100.8 UG/KG (0.07 UG/KG, 1 IN 1 MIN), INTRAVENOUS
     Route: 042
     Dates: start: 20100201, end: 20121211
  2. ADCIRCA (TADALAFIL) [Concomitant]
  3. COUMADIN (WARFARIN SODIUM) [Concomitant]
  4. LETAIRIS (AMBRISENTAN) (TABLETS) [Concomitant]

REACTIONS (5)
  - Device related infection [None]
  - Staphylococcal infection [None]
  - Diarrhoea [None]
  - Vomiting [None]
  - Nausea [None]
